FAERS Safety Report 20984310 (Version 1)
Quarter: 2022Q2

REPORT INFORMATION
  Report Type: Other
  Country: US (occurrence: None)
  Receive Date: 20220621
  Receipt Date: 20220621
  Transmission Date: 20220721
  Serious: Yes (Other)
  Sender: FDA-Public Use
  Company Number: US-ROCHE-2971474

PATIENT
  Age: 82 Year
  Sex: Male

DRUGS (3)
  1. ATEZOLIZUMAB [Suspect]
     Active Substance: ATEZOLIZUMAB
     Indication: Transitional cell carcinoma metastatic
     Route: 065
  2. PREDNISONE [Concomitant]
     Active Substance: PREDNISONE
  3. CABOZANTINIB [Concomitant]
     Active Substance: CABOZANTINIB

REACTIONS (2)
  - Myocarditis [Recovering/Resolving]
  - Myositis [Recovering/Resolving]
